FAERS Safety Report 5158189-5 (Version None)
Quarter: 2006Q4

REPORT INFORMATION
  Report Type: 
  Country: None (occurrence: None)
  Receive Date: 20061120
  Receipt Date: 20061120
  Transmission Date: 20070319
  Serious: No
  Sender: FDA-Public Use
  Company Number: None

PATIENT
  Age: 58 Year
  Sex: Male
  Weight: 66.6788 kg

DRUGS (2)
  1. ATIVAN [Suspect]
     Dosage: 2 MGS / 1 MG Q4H/PRN Q4H/PRN IM
     Route: 030
     Dates: start: 20060907, end: 20060908
  2. AMBIEN [Suspect]
     Dosage: 1 MG BID / PRN PO
     Route: 048
     Dates: start: 20060907, end: 20060908

REACTIONS (6)
  - BRAIN DAMAGE [None]
  - CATAPLEXY [None]
  - MEDICATION ERROR [None]
  - OFF LABEL USE [None]
  - OVERDOSE [None]
  - RESPIRATORY DISORDER [None]
